FAERS Safety Report 11796902 (Version 5)
Quarter: 2022Q2

REPORT INFORMATION
  Report Type: Report from Study
  Country: JP (occurrence: JP)
  Receive Date: 20151203
  Receipt Date: 20220401
  Transmission Date: 20220720
  Serious: Yes (Hospitalization)
  Sender: FDA-Public Use
  Company Number: JP-BAYER-2015-386735

PATIENT
  Age: 80 Year
  Sex: Female

DRUGS (17)
  1. ADEMPAS [Suspect]
     Active Substance: RIOCIGUAT
     Indication: Pulmonary hypertension
     Dosage: DAILY DOSE 1.5 MG
     Route: 048
     Dates: start: 20140722, end: 20141228
  2. ADEMPAS [Suspect]
     Active Substance: RIOCIGUAT
     Indication: Pulmonary hypertension
     Dosage: 3 MG/D, TID
     Route: 048
     Dates: start: 20140722, end: 20140725
  3. ADEMPAS [Suspect]
     Active Substance: RIOCIGUAT
     Indication: Pulmonary hypertension
     Dosage: 4.5 MG/D, TID
     Route: 048
     Dates: start: 20140726, end: 20140806
  4. ADEMPAS [Suspect]
     Active Substance: RIOCIGUAT
     Indication: Pulmonary hypertension
     Dosage: 1.5 MG/D, TID
     Route: 048
     Dates: start: 20140807, end: 20141218
  5. ADEMPAS [Suspect]
     Active Substance: RIOCIGUAT
     Indication: Pulmonary hypertension
     Dosage: 1 MG/D, TID
     Route: 048
     Dates: start: 20141219, end: 20150107
  6. LOXOPROFEN SODIUM [Concomitant]
     Active Substance: LOXOPROFEN SODIUM
     Indication: Crowned dens syndrome
     Dosage: DAILY DOSE 60 MG
     Route: 048
     Dates: start: 20141009, end: 20141010
  7. WARFARIN POTASSIUM [Concomitant]
     Active Substance: WARFARIN POTASSIUM
     Indication: Pulmonary hypertension
     Dosage: DAILY DOSE 1.5 MG
     Route: 048
     Dates: start: 20140624, end: 20150107
  8. TRACLEER [Concomitant]
     Active Substance: BOSENTAN
     Indication: Pulmonary hypertension
     Dosage: DAILY DOSE 125 MG
     Route: 048
     Dates: start: 20140801, end: 20140826
  9. LASIX [Concomitant]
     Active Substance: FUROSEMIDE
     Indication: Pulmonary hypertension
     Dosage: DAILY DOSE 40 MG
     Route: 048
     Dates: start: 20140624, end: 20150107
  10. SPIRONOLACTONE [Concomitant]
     Active Substance: SPIRONOLACTONE
     Indication: Pulmonary hypertension
     Dosage: DAILY DOSE 25 MG
     Route: 048
     Dates: start: 20140624, end: 20150107
  11. BISOPROLOL FUMARATE [Concomitant]
     Active Substance: BISOPROLOL FUMARATE
     Dosage: DAILY DOSE .625 MG
     Route: 048
     Dates: start: 20140624, end: 20150107
  12. RABEPRAZOLE SODIUM [Concomitant]
     Active Substance: RABEPRAZOLE SODIUM
     Dosage: DAILY DOSE 10 MG
     Route: 048
     Dates: start: 20140624, end: 20150108
  13. LANSOPRAZOLE [Concomitant]
     Active Substance: LANSOPRAZOLE
     Dosage: DAILY DOSE 15 MG
     Route: 048
     Dates: start: 20140624, end: 20150107
  14. MAGNESIUM OXIDE [Concomitant]
     Active Substance: MAGNESIUM OXIDE
     Dosage: DAILY DOSE 500 MG
     Route: 048
     Dates: start: 20140624, end: 20150107
  15. FEBUXOSTAT [Concomitant]
     Active Substance: FEBUXOSTAT
     Dosage: DAILY DOSE 10 MG
     Route: 048
     Dates: start: 20140624, end: 20140826
  16. FEBUXOSTAT [Concomitant]
     Active Substance: FEBUXOSTAT
     Dosage: DAILY DOSE 10 MG
     Route: 048
     Dates: start: 20140624, end: 20140826
  17. WARFARIN [Concomitant]
     Active Substance: WARFARIN
     Indication: Pulmonary hypertension
     Dosage: DAILY DOSE 1.5 MG
     Route: 048
     Dates: start: 20140624, end: 20150107

REACTIONS (1)
  - Intestinal obstruction [Recovering/Resolving]

NARRATIVE: CASE EVENT DATE: 20140807
